FAERS Safety Report 18167844 (Version 1)
Quarter: 2020Q3

REPORT INFORMATION
  Report Type: Spontaneous
  Country: US (occurrence: US)
  Receive Date: 20200818
  Receipt Date: 20200818
  Transmission Date: 20201103
  Serious: Yes (Other)
  Sender: FDA-Public Use
  Company Number: US-OTSUKA-2020_005230

PATIENT

DRUGS (1)
  1. ABILIFY [Suspect]
     Active Substance: ARIPIPRAZOLE
     Indication: PRODUCT USED FOR UNKNOWN INDICATION
     Dosage: UNK
     Route: 065
     Dates: end: 201203

REACTIONS (8)
  - Hyperpyrexia [Unknown]
  - Mental status changes [Unknown]
  - Muscle rigidity [Unknown]
  - Arrhythmia [Unknown]
  - Neuroleptic malignant syndrome [Unknown]
  - Heart rate irregular [Unknown]
  - Tachycardia [Unknown]
  - Hyperhidrosis [Unknown]
